FAERS Safety Report 7302693-8 (Version None)
Quarter: 2011Q1

REPORT INFORMATION
  Report Type: 
  Country: None (occurrence: None)
  Receive Date: 20110218
  Receipt Date: 20110215
  Transmission Date: 20110831
  Serious: Yes (Death)
  Sender: FDA-Public Use
  Company Number: US-PFIZER INC-2010176447

PATIENT
  Age: 27 Year
  Sex: Female
  Weight: 57 kg

DRUGS (2)
  1. OXYCODONE [Suspect]
     Dosage: UNK
  2. XANAX [Suspect]
     Dosage: UNK

REACTIONS (1)
  - TOXICITY TO VARIOUS AGENTS [None]
